FAERS Safety Report 26063038 (Version 2)
Quarter: 2025Q4

REPORT INFORMATION
  Report Type: Spontaneous
  Country: JP (occurrence: JP)
  Receive Date: 20251119
  Receipt Date: 20251202
  Transmission Date: 20260118
  Serious: Yes (Other)
  Sender: JOHNSON AND JOHNSON
  Company Number: JP-JNJFOC-20251163506

PATIENT

DRUGS (2)
  1. LAZCLUZE [Suspect]
     Active Substance: LAZERTINIB
     Indication: EGFR gene mutation
     Route: 048
     Dates: start: 20251113
  2. RYBREVANT [Suspect]
     Active Substance: AMIVANTAMAB-VMJW
     Indication: EGFR gene mutation
     Route: 041
     Dates: start: 20251113, end: 20251113

REACTIONS (1)
  - Infusion related reaction [Recovered/Resolved]

NARRATIVE: CASE EVENT DATE: 20251113
